FAERS Safety Report 7263843-5 (Version None)
Quarter: 2011Q1

REPORT INFORMATION
  Report Type: 
  Country: None (occurrence: None)
  Receive Date: 20110130
  Receipt Date: 20101109
  Transmission Date: 20110831
  Serious: No
  Sender: FDA-Public Use
  Company Number: US-ABBOTT-10P-163-0684373-00

PATIENT
  Sex: Female
  Weight: 102.15 kg

DRUGS (7)
  1. TYLENOL EXTRA STRENGTH [Concomitant]
     Indication: HEADACHE
     Route: 048
     Dates: start: 20090808, end: 20100507
  2. HUMIRA [Suspect]
     Indication: CROHN'S DISEASE
     Dates: start: 20090808, end: 20100507
  3. INFLUENZA VACCINES [Concomitant]
     Indication: INFLUENZA IMMUNISATION
     Dates: start: 20091101, end: 20091101
  4. NEXIUM [Concomitant]
     Indication: GASTROOESOPHAGEAL REFLUX DISEASE
     Route: 048
     Dates: start: 20090808, end: 20100507
  5. H1N1 2009 INFLUENZA VACCINE NOS [Concomitant]
     Indication: INFLUENZA IMMUNISATION
     Dates: start: 20091015, end: 20091015
  6. CAFFEINE [Concomitant]
     Indication: PRODUCT USED FOR UNKNOWN INDICATION
     Dosage: PEPSI
     Route: 048
     Dates: start: 20090808, end: 20100507
  7. TUMS [Concomitant]
     Indication: DYSPEPSIA
     Dosage: 2 PER DAY AS NEEDED
     Route: 048
     Dates: start: 20090808, end: 20100507

REACTIONS (1)
  - SINUSITIS [None]
